FAERS Safety Report 13774736 (Version 1)
Quarter: 2017Q3

REPORT INFORMATION
  Report Type: Report from Study
  Country: CA (occurrence: CA)
  Receive Date: 20170721
  Receipt Date: 20170721
  Transmission Date: 20171127
  Serious: Yes (Other)
  Sender: FDA-Public Use
  Company Number: CA-BEH-2017082179

PATIENT
  Age: 54 Year
  Sex: Female

DRUGS (5)
  1. CELEXA [Concomitant]
     Active Substance: CITALOPRAM HYDROBROMIDE
  2. HIZENTRA [Suspect]
     Active Substance: HUMAN IMMUNOGLOBULIN G
     Indication: PRIMARY IMMUNODEFICIENCY SYNDROME
     Dosage: 12.0 (UNITS NOT REPORTED), TOT
     Route: 058
     Dates: start: 20170716, end: 20170716
  3. MORPHINE [Concomitant]
     Active Substance: MORPHINE
     Indication: PAIN IN EXTREMITY
  4. HIZENTRA [Suspect]
     Active Substance: HUMAN IMMUNOGLOBULIN G
     Dosage: 12.0 (UNITS NOT REPORTED), QW
     Route: 058
     Dates: start: 20160614
  5. CODEINE [Concomitant]
     Active Substance: CODEINE
     Dosage: UNK, PRN
     Route: 065

REACTIONS (5)
  - Erythema [Not Recovered/Not Resolved]
  - Cellulitis [Not Recovered/Not Resolved]
  - Skin burning sensation [Not Recovered/Not Resolved]
  - Skin swelling [Not Recovered/Not Resolved]
  - Rash generalised [Not Recovered/Not Resolved]

NARRATIVE: CASE EVENT DATE: 20170716
